FAERS Safety Report 24878755 (Version 1)
Quarter: 2025Q1

REPORT INFORMATION
  Report Type: Spontaneous
  Country: US (occurrence: None)
  Receive Date: 20250122
  Receipt Date: 20250122
  Transmission Date: 20250409
  Serious: Yes (unspecified)
  Sender: FDA-CTU
  Company Number: None

PATIENT
  Age: 68 Year
  Sex: Male

DRUGS (2)
  1. AMANTADINE HYDROCHLORIDE [Suspect]
     Active Substance: AMANTADINE HYDROCHLORIDE
     Indication: Parkinsonism
     Dates: end: 20241127
  2. AMANTADINE HYDROCHLORIDE [Suspect]
     Active Substance: AMANTADINE HYDROCHLORIDE
     Indication: Extrapyramidal disorder

REACTIONS (1)
  - Corneal oedema [None]

NARRATIVE: CASE EVENT DATE: 20241001
